FAERS Safety Report 13433406 (Version 2)
Quarter: 2017Q2

REPORT INFORMATION
  Report Type: Spontaneous
  Country: IT (occurrence: IT)
  Receive Date: 20170412
  Receipt Date: 20170619
  Transmission Date: 20170830
  Serious: Yes (Hospitalization)
  Sender: FDA-Public Use
  Company Number: IT-HIKMA PHARMACEUTICALS CO. LTD-2017IT004404

PATIENT

DRUGS (3)
  1. REMSIMA [Suspect]
     Active Substance: INFLIXIMAB
     Indication: ANKYLOSING SPONDYLITIS
     Dosage: 300 MG, CYCLIC
     Route: 042
     Dates: start: 20160405, end: 20160405
  2. REUMAFLEX                          /00113802/ [Suspect]
     Active Substance: METHOTREXATE SODIUM
     Indication: ANKYLOSING SPONDYLITIS
     Dosage: 10 MG, 1/WEEK
     Route: 058
     Dates: start: 20160405, end: 20170304
  3. REMSIMA [Suspect]
     Active Substance: INFLIXIMAB
     Dosage: 300 MG, CYCLIC
     Route: 042
     Dates: start: 20170304, end: 20170304

REACTIONS (1)
  - Haemoptysis [Recovered/Resolved]

NARRATIVE: CASE EVENT DATE: 20170307
